FAERS Safety Report 7708704-X (Version None)
Quarter: 2011Q3

REPORT INFORMATION
  Report Type: 
  Country: None (occurrence: None)
  Receive Date: 20110825
  Receipt Date: 20110818
  Transmission Date: 20111222
  Serious: Yes (Hospitalization, Other)
  Sender: FDA-Public Use
  Company Number: FR-SANOFI-AVENTIS-2011SA034982

PATIENT
  Sex: Female

DRUGS (20)
  1. PREDNISONE [Concomitant]
     Indication: RHEUMATOID ARTHRITIS
     Route: 048
  2. ZOLPIDEM [Concomitant]
     Route: 048
  3. LEVOTHYROXINE SODIUM [Concomitant]
     Route: 048
  4. ESOMEPRAZOLE MAGNESIUM [Concomitant]
     Route: 065
  5. DOMPERIDONE [Concomitant]
     Route: 048
  6. MORPHINE SULFATE [Concomitant]
     Route: 048
  7. DEDROGYL [Concomitant]
  8. BONIVA [Concomitant]
     Route: 065
  9. PLAQUENIL [Concomitant]
  10. PREDNISONE [Concomitant]
     Indication: SCLERODERMA
     Route: 048
  11. OLMESARTAN MEDOXOMIL [Concomitant]
     Route: 048
  12. ACETAMINOPHEN [Concomitant]
     Route: 065
  13. MORPHINE SULFATE [Concomitant]
     Route: 048
  14. VITAMIN B-12 [Concomitant]
     Dosage: DOSE:1 UNIT(S)
  15. ARAVA [Suspect]
     Indication: RHEUMATOID ARTHRITIS
     Route: 048
     Dates: start: 20091001, end: 20110530
  16. TORENTAL [Concomitant]
  17. ARAVA [Suspect]
     Indication: SCLERODERMA
     Route: 048
     Dates: start: 20091001, end: 20110530
  18. ISOPTIN [Concomitant]
     Route: 048
  19. FORLAX [Concomitant]
     Dosage: DOSE:2 UNIT(S)
     Dates: end: 20110501
  20. PENICILLAMINE [Concomitant]

REACTIONS (6)
  - HYPOAESTHESIA [None]
  - MONOPARESIS [None]
  - PAIN IN EXTREMITY [None]
  - PARAESTHESIA [None]
  - PARAPARESIS [None]
  - PERIPHERAL SENSORY NEUROPATHY [None]
